FAERS Safety Report 25068489 (Version 6)
Quarter: 2025Q2

REPORT INFORMATION
  Report Type: Report from Study
  Country: CN (occurrence: CN)
  Receive Date: 20250312
  Receipt Date: 20250520
  Transmission Date: 20250717
  Serious: Yes (Hospitalization)
  Sender: AMGEN
  Company Number: CN-AMGEN-CHNNI2025035575

PATIENT
  Age: 75 Year
  Sex: Male
  Weight: 75 kg

DRUGS (3)
  1. DENOSUMAB [Suspect]
     Active Substance: DENOSUMAB
     Indication: Bone cancer metastatic
     Dosage: 120 MILLIGRAM, Q4WK
     Route: 058
     Dates: start: 20241031
  2. ENZALUTAMIDE [Concomitant]
     Active Substance: ENZALUTAMIDE
     Route: 048
     Dates: start: 20241031, end: 202412
  3. PREDNISONE ACETATE [Concomitant]
     Active Substance: PREDNISONE ACETATE
     Route: 048
     Dates: start: 201904

REACTIONS (4)
  - Generalised oedema [Recovered/Resolved]
  - Peripheral vein thrombosis [Not Recovered/Not Resolved]
  - Upper respiratory tract infection [Not Recovered/Not Resolved]
  - Hypocalcaemia [Not Recovered/Not Resolved]

NARRATIVE: CASE EVENT DATE: 20241226
